FAERS Safety Report 21788303 (Version 1)
Quarter: 2022Q4

REPORT INFORMATION
  Report Type: Spontaneous
  Country: CA (occurrence: CA)
  Receive Date: 20221228
  Receipt Date: 20221228
  Transmission Date: 20230113
  Serious: Yes (Other)
  Sender: FDA-Public Use
  Company Number: CA-MYLANLABS-2022M1143448

PATIENT
  Age: 26 Year
  Sex: Male

DRUGS (5)
  1. VERAPAMIL [Suspect]
     Active Substance: VERAPAMIL HYDROCHLORIDE
     Indication: Ventricular fibrillation
     Dosage: UNK
     Route: 065
  2. LIDOCAINE [Suspect]
     Active Substance: LIDOCAINE
     Indication: Ventricular fibrillation
     Dosage: UNK
     Route: 065
  3. METOPROLOL [Suspect]
     Active Substance: METOPROLOL
     Indication: Ventricular fibrillation
     Dosage: UNK
     Route: 065
  4. QUININE [Concomitant]
     Active Substance: QUININE
     Indication: Ventricular fibrillation
     Dosage: 300 MILLIGRAM, TID; THREE TIMES DAILY.
     Route: 048
  5. ISOPROTERENOL [Concomitant]
     Active Substance: ISOPROTERENOL
     Indication: Ventricular fibrillation
     Dosage: 2 MICROGRAM, QMINUTE
     Route: 042

REACTIONS (1)
  - Drug ineffective [Unknown]
